FAERS Safety Report 11212777 (Version 1)
Quarter: 2015Q2

REPORT INFORMATION
  Report Type: Spontaneous
  Country: US (occurrence: None)
  Receive Date: 20150622
  Receipt Date: 20150622
  Transmission Date: 20150821
  Serious: No
  Sender: FDA-Public Use
  Company Number: None

PATIENT
  Age: 60 Year
  Sex: Female
  Weight: 61.24 kg

DRUGS (17)
  1. CYMBALTA [Concomitant]
     Active Substance: DULOXETINE HYDROCHLORIDE
  2. ZYRTEC [Concomitant]
     Active Substance: CETIRIZINE HYDROCHLORIDE
  3. LORAZEPAM. [Concomitant]
     Active Substance: LORAZEPAM
  4. FERROUS GLUCONATE [Concomitant]
     Active Substance: FERROUS GLUCONATE
  5. LORATADINE. [Concomitant]
     Active Substance: LORATADINE
  6. BUPROPION [Concomitant]
     Active Substance: BUPROPION
  7. HYDROXYZINE [Concomitant]
     Active Substance: HYDROXYZINE\HYDROXYZINE HYDROCHLORIDE
  8. V-C [Concomitant]
  9. NORCO [Concomitant]
     Active Substance: ACETAMINOPHEN\HYDROCODONE BITARTRATE
  10. SYMBICORT [Concomitant]
     Active Substance: BUDESONIDE\FORMOTEROL FUMARATE DIHYDRATE
  11. GUAIFENESIN. [Concomitant]
     Active Substance: GUAIFENESIN
  12. ALBUTEROL. [Concomitant]
     Active Substance: ALBUTEROL
  13. LEVSIN [Concomitant]
     Active Substance: HYOSCYAMINE SULFATE
  14. ESTRACE [Suspect]
     Active Substance: ESTRADIOL
     Route: 067
     Dates: start: 20150615, end: 20150618
  15. BENTYL [Concomitant]
     Active Substance: DICYCLOMINE HYDROCHLORIDE
  16. PROBIOTICS [Concomitant]
     Active Substance: PROBIOTICS NOS
  17. DEXTROMETHORPHAN [Concomitant]
     Active Substance: DEXTROMETHORPHAN

REACTIONS (3)
  - Vulvovaginal discomfort [None]
  - Vaginal odour [None]
  - Urethritis noninfective [None]

NARRATIVE: CASE EVENT DATE: 20150615
